FAERS Safety Report 11083721 (Version 2)
Quarter: 2015Q2

REPORT INFORMATION
  Report Type: Spontaneous
  Country: JP (occurrence: JP)
  Receive Date: 20150501
  Receipt Date: 20150625
  Transmission Date: 20150821
  Serious: Yes (Hospitalization)
  Sender: FDA-Public Use
  Company Number: JP-MYLANLABS-2015M1013201

PATIENT

DRUGS (4)
  1. CLIMAGEN OD TABLETS 10MG [Suspect]
     Active Substance: FAMOTIDINE
     Indication: PEMPHIGOID
     Dosage: ??
     Route: 048
     Dates: start: 201212, end: 201301
  2. FEXOFENADINE HYDROCHLORIDE. [Suspect]
     Active Substance: FEXOFENADINE HYDROCHLORIDE
     Indication: PEMPHIGOID
     Dosage: ??
     Route: 065
     Dates: start: 201212, end: 201301
  3. MINOCYCLINE HYDROCHLORIDE. [Suspect]
     Active Substance: MINOCYCLINE HYDROCHLORIDE
     Indication: PEMPHIGOID
     Dosage: UNK
     Route: 065
  4. PREDNISOLONE. [Concomitant]
     Active Substance: PREDNISOLONE
     Indication: PEMPHIGOID
     Dosage: 5 MG, UNK
     Route: 065
     Dates: start: 201212

REACTIONS (1)
  - Agranulocytosis [Recovered/Resolved]

NARRATIVE: CASE EVENT DATE: 201301
